FAERS Safety Report 10563067 (Version 4)
Quarter: 2014Q4

REPORT INFORMATION
  Report Type: Report from Study
  Country: US (occurrence: US)
  Receive Date: 20141104
  Receipt Date: 20141119
  Transmission Date: 20150529
  Serious: Yes (Congenital Anomaly)
  Sender: FDA-Public Use
  Company Number: US-B.I. PHARMACEUTICALS,INC./RIDGEFIELD-2014-BI-52185BI

PATIENT
  Age: 0 Day
  Sex: Male
  Weight: 2.16 kg

DRUGS (6)
  1. VIRAMUNE [Suspect]
     Active Substance: NEVIRAPINE
     Indication: EXPOSURE DURING PREGNANCY
     Dosage: DAILY DOSE: 2 TAB/CAPS
     Route: 064
  2. BETAMETHASONE [Concomitant]
     Active Substance: BETAMETHASONE
     Indication: EXPOSURE DURING PREGNANCY
     Route: 065
  3. METRONIDAZOLE. [Concomitant]
     Active Substance: METRONIDAZOLE
     Indication: EXPOSURE DURING PREGNANCY
     Route: 065
  4. COMBIVIR [Concomitant]
     Active Substance: LAMIVUDINE\ZIDOVUDINE
     Indication: EXPOSURE DURING PREGNANCY
     Dosage: DAILY DOSE: 2 TAB/CAPS
     Route: 064
  5. FLU VACCINE [Concomitant]
     Active Substance: INFLUENZA VIRUS VACCINE
     Indication: EXPOSURE DURING PREGNANCY
     Route: 065
  6. RETROVIR [Concomitant]
     Active Substance: ZIDOVUDINE
     Indication: EXPOSURE DURING PREGNANCY
     Dosage: 784 MG
     Route: 064
     Dates: start: 20130419, end: 20130419

REACTIONS (3)
  - Premature baby [Unknown]
  - Low birth weight baby [Unknown]
  - Foetal cystic hygroma [Unknown]

NARRATIVE: CASE EVENT DATE: 20130419
